FAERS Safety Report 7463411-6 (Version None)
Quarter: 2011Q2

REPORT INFORMATION
  Report Type: 
  Country: None (occurrence: None)
  Receive Date: 20110506
  Receipt Date: 20110428
  Transmission Date: 20111010
  Serious: Yes (Death)
  Sender: FDA-Public Use
  Company Number: B0654405A

PATIENT
  Sex: Male
  Weight: 50 kg

DRUGS (12)
  1. ARICEPT [Suspect]
     Indication: DEMENTIA
     Dosage: 5MG PER DAY
     Route: 048
  2. SALUMOSIN [Concomitant]
     Dosage: 10MG PER DAY
     Route: 048
  3. THEO-DUR [Concomitant]
     Indication: CHRONIC OBSTRUCTIVE PULMONARY DISEASE
     Dosage: 400MG PER DAY
     Route: 048
  4. AMBROXOL [Concomitant]
     Indication: CHRONIC OBSTRUCTIVE PULMONARY DISEASE
     Dosage: 30MG PER DAY
     Route: 048
  5. LOSARTAN POTASSIUM [Suspect]
     Indication: HYPERTENSION
     Dosage: 50MG PER DAY
     Route: 048
  6. TOLEDOMIN [Suspect]
     Indication: DEPRESSION
     Dosage: 100MG PER DAY
     Route: 048
  7. CLARITIN [Concomitant]
     Indication: CHRONIC OBSTRUCTIVE PULMONARY DISEASE
     Dosage: 10MG PER DAY
     Route: 048
  8. GOODMIN [Suspect]
     Indication: INSOMNIA
     Dosage: .25MG PER DAY
     Route: 048
  9. ZOLPIDEM [Suspect]
     Indication: INSOMNIA
     Dosage: 5MG PER DAY
     Route: 048
  10. SPIRIVA [Concomitant]
     Indication: CHRONIC OBSTRUCTIVE PULMONARY DISEASE
     Dosage: 18MCG PER DAY
     Route: 055
  11. MUCOSTA [Concomitant]
     Dosage: 300MG PER DAY
     Route: 048
  12. ADVAIR HFA [Suspect]
     Indication: EMPHYSEMA
     Dosage: 500MCG PER DAY
     Route: 055
     Dates: start: 20091210, end: 20100417

REACTIONS (5)
  - DYSPNOEA [None]
  - INCREASED VISCOSITY OF BRONCHIAL SECRETION [None]
  - EMOTIONAL DISTRESS [None]
  - STATUS ASTHMATICUS [None]
  - WHEEZING [None]
